FAERS Safety Report 10193127 (Version 1)
Quarter: 2014Q2

REPORT INFORMATION
  Report Type: Spontaneous
  Country: US (occurrence: US)
  Receive Date: 20140524
  Receipt Date: 20140524
  Transmission Date: 20141212
  Serious: No
  Sender: FDA-Public Use
  Company Number: US-SA-2013SA115399

PATIENT
  Age: 50 Year
  Sex: Female

DRUGS (3)
  1. SOLOSTAR [Suspect]
     Indication: TYPE 1 DIABETES MELLITUS
     Dosage: TAKEN FROM: A LONG YEAR.
  2. LANTUS SOLOSTAR [Suspect]
     Indication: TYPE 1 DIABETES MELLITUS
     Dosage: TAKEN FROM: A LONG TIME. DOSE:27 UNIT(S)
     Route: 051
  3. NOVOLOG [Concomitant]

REACTIONS (2)
  - Carpal tunnel syndrome [Unknown]
  - Blood glucose increased [Unknown]
